FAERS Safety Report 9819295 (Version 1)
Quarter: 2014Q1

REPORT INFORMATION
  Report Type: Spontaneous
  Country: US (occurrence: US)
  Receive Date: 20140115
  Receipt Date: 20140115
  Transmission Date: 20141002
  Serious: No
  Sender: FDA-Public Use
  Company Number: US-PFIZER INC-2014006621

PATIENT
  Sex: 0

DRUGS (15)
  1. AMOXICILLIN [Suspect]
     Dosage: UNK
  2. ZITHROMAX [Suspect]
     Dosage: UNK
  3. DOXYCYCLINE HYCLATE [Suspect]
     Dosage: UNK
  4. ERYTHROMYCIN [Suspect]
     Dosage: UNK
  5. IBUPROFEN [Suspect]
     Dosage: UNK
  6. MINOCYCLINE [Suspect]
     Dosage: UNK
  7. NAPROXEN SODIUM [Suspect]
     Dosage: UNK
  8. TETRACYCLINE HCL [Suspect]
     Dosage: UNK
  9. TYLENOL [Suspect]
     Dosage: UNK
  10. ASPIRIN [Suspect]
     Dosage: UNK
  11. KEFLEX [Suspect]
     Dosage: UNK
  12. CODEINE [Suspect]
     Dosage: UNK
  13. BIAXIN [Suspect]
     Dosage: UNK
  14. OXYCONTIN [Suspect]
     Dosage: UNK
  15. PERCOCET [Suspect]
     Dosage: UNK

REACTIONS (1)
  - Drug hypersensitivity [Unknown]
